FAERS Safety Report 24160924 (Version 2)
Quarter: 2024Q3

REPORT INFORMATION
  Report Type: Spontaneous
  Country: US (occurrence: US)
  Receive Date: 20240801
  Receipt Date: 20240816
  Transmission Date: 20241017
  Serious: Yes (Other)
  Sender: TEVA
  Company Number: US-TEVA-VS-3225946

PATIENT
  Age: 18 Year
  Sex: Male

DRUGS (3)
  1. EMTRICITABINE\TENOFOVIR DISOPROXIL [Suspect]
     Active Substance: EMTRICITABINE\TENOFOVIR DISOPROXIL
     Indication: Prophylaxis against HIV infection
     Dosage: 200MG/300MG DAILY
     Route: 048
  2. BICTEGRAVIR\EMTRICITABINE\TENOFOVIR ALAFENAMIDE [Suspect]
     Active Substance: BICTEGRAVIR\EMTRICITABINE\TENOFOVIR ALAFENAMIDE
     Indication: HIV infection
     Dosage: 50MG/200MG/25MG
     Route: 048
  3. PENICILLIN G BENZATHINE [Concomitant]
     Active Substance: PENICILLIN G BENZATHINE
     Indication: Latent syphilis
     Dosage: 2.4 MILLION UNITS
     Route: 030

REACTIONS (1)
  - Drug resistance [Unknown]
